FAERS Safety Report 9780327 (Version 1)
Quarter: 2013Q4

REPORT INFORMATION
  Report Type: Spontaneous
  Country: US (occurrence: US)
  Receive Date: 20131224
  Receipt Date: 20131224
  Transmission Date: 20140711
  Serious: Yes (Other)
  Sender: FDA-Public Use
  Company Number: US-ASTRAZENECA-2013SE91826

PATIENT
  Age: 67 Year
  Sex: Male
  Weight: 100 kg

DRUGS (2)
  1. BRILINTA [Suspect]
     Indication: CORONARY ANGIOPLASTY
     Route: 048
     Dates: start: 201312, end: 201312
  2. BRILINTA [Suspect]
     Indication: STENT PLACEMENT
     Route: 048
     Dates: start: 201312, end: 201312

REACTIONS (1)
  - Dyspnoea [Recovered/Resolved]
